FAERS Safety Report 25148708 (Version 1)
Quarter: 2025Q2

REPORT INFORMATION
  Report Type: Report from Study
  Country: US (occurrence: US)
  Receive Date: 20250402
  Receipt Date: 20250402
  Transmission Date: 20250716
  Serious: Yes (Other)
  Sender: AMGEN
  Company Number: US-AMGEN-USASL2025060645

PATIENT

DRUGS (1)
  1. REPATHA [Suspect]
     Active Substance: EVOLOCUMAB
     Indication: Product used for unknown indication
     Route: 065
     Dates: end: 20241216

REACTIONS (9)
  - Neoplasm malignant [Unknown]
  - Hypothermia [Unknown]
  - Epistaxis [Unknown]
  - Mouth haemorrhage [Unknown]
  - Eye haemorrhage [Unknown]
  - Ear haemorrhage [Unknown]
  - Dyspnoea [Unknown]
  - White blood cell count abnormal [Unknown]
  - Incorrect disposal of product [Unknown]
